FAERS Safety Report 4549591-0 (Version None)
Quarter: 2005Q1

REPORT INFORMATION
  Report Type: 
  Country: None (occurrence: None)
  Receive Date: 20050111
  Receipt Date: 20041230
  Transmission Date: 20050727
  Serious: Yes (Other)
  Sender: FDA-Public Use
  Company Number: DE-JNJFOC-20050100884

PATIENT
  Age: 16 Year
  Sex: Female
  Weight: 50 kg

DRUGS (4)
  1. CAELYX [Suspect]
     Dosage: 508 MG (CUMULATIVE DOSE)
     Route: 042
  2. CISPLATIN [Suspect]
     Dosage: 508 MG (CUMULATIVE DOSE)
     Route: 042
  3. METHOTREXATE [Suspect]
     Dosage: 146.4 G  (CUMULATIVE DOSE)
     Route: 042
  4. IFOSFAMIDE [Suspect]
     Dosage: 24.8 G (CUMULATIVE DOSE)
     Route: 042

REACTIONS (5)
  - BETA 2 MICROGLOBULIN INCREASED [None]
  - CAVERNOUS SINUS THROMBOSIS [None]
  - CEREBROVASCULAR ACCIDENT [None]
  - DEAFNESS TRANSITORY [None]
  - PREGNANCY [None]
